FAERS Safety Report 7295930-X (Version None)
Quarter: 2011Q1

REPORT INFORMATION
  Report Type: 
  Country: None (occurrence: None)
  Receive Date: 20110216
  Receipt Date: 20110208
  Transmission Date: 20110831
  Serious: No
  Sender: FDA-Public Use
  Company Number: US-ABBOTT-11P-163-0703473-00

PATIENT
  Sex: Female

DRUGS (4)
  1. REMERON [Concomitant]
     Indication: PRODUCT USED FOR UNKNOWN INDICATION
  2. FLEXIDO [Concomitant]
     Indication: PRODUCT USED FOR UNKNOWN INDICATION
  3. SIMCOR [Suspect]
     Indication: PRODUCT USED FOR UNKNOWN INDICATION
  4. FISH OIL [Concomitant]
     Indication: PRODUCT USED FOR UNKNOWN INDICATION

REACTIONS (2)
  - RESTLESSNESS [None]
  - POOR QUALITY SLEEP [None]
